FAERS Safety Report 20059272 (Version 1)
Quarter: 2021Q4

REPORT INFORMATION
  Report Type: Spontaneous
  Country: GB (occurrence: GB)
  Receive Date: 20211111
  Receipt Date: 20211111
  Transmission Date: 20220303
  Serious: Yes (Disabling, Other)
  Sender: FDA-Public Use
  Company Number: None

PATIENT
  Age: 45 Year
  Sex: Female
  Weight: 61 kg

DRUGS (8)
  1. MYCOPHENOLATE MOFETIL [Suspect]
     Active Substance: MYCOPHENOLATE MOFETIL
     Indication: Product used for unknown indication
     Dosage: 250 MILLIGRAM, BID
     Route: 048
     Dates: start: 20190202, end: 20211028
  2. EVACAL D3 [Concomitant]
     Dosage: 1 DOSAGE FORM, BID (1500MG/400UNIT   )
     Dates: start: 20210820
  3. FERROUS FUMARATE [Concomitant]
     Active Substance: FERROUS FUMARATE
     Dosage: 210 MILLIGRAM, TID (AFTER FOOD, AS DIRECTED BY )
     Dates: start: 20210906
  4. FLUCONAZOLE [Concomitant]
     Active Substance: FLUCONAZOLE
     Dosage: 50 MILLIGRAM, QD (FOR 7 DAYS.)
     Dates: start: 20211022
  5. FOLIC ACID [Concomitant]
     Active Substance: FOLIC ACID
     Dosage: 5 MILLIGRAM, QD (AS DIRECTED BY)
     Dates: start: 20210906
  6. LACTULOSE [Concomitant]
     Active Substance: LACTULOSE
     Indication: Constipation
     Dosage: 10 MILLILITER, BID (3.1-3.7G/5ML. WHEN REQUIRED)
     Route: 048
     Dates: start: 20211007
  7. NORIDAY                            /00022701/ [Concomitant]
     Dosage: 350 MICROGRAM, QD (ANNUAL REVIEW DUE OCTOBER )
     Dates: start: 20211021
  8. NYSTATIN [Concomitant]
     Active Substance: NYSTATIN
     Dosage: 1 MILLILITER, QID (100,000IU/ML IT IS RECOMMENDED TO KEEP)
     Route: 048
     Dates: start: 20211022

REACTIONS (4)
  - Toothache [Recovered/Resolved]
  - Ear pain [Unknown]
  - Headache [Unknown]
  - Gingivitis [Unknown]

NARRATIVE: CASE EVENT DATE: 20210722
